FAERS Safety Report 5074586-0 (Version None)
Quarter: 2006Q3

REPORT INFORMATION
  Report Type: 
  Country: None (occurrence: None)
  Receive Date: 20060808
  Receipt Date: 20060203
  Transmission Date: 20061208
  Serious: No
  Sender: FDA-Public Use
  Company Number: US-AMGEN-KDL167866

PATIENT
  Sex: Female

DRUGS (6)
  1. PROCRIT [Suspect]
     Indication: ANAEMIA
     Route: 058
     Dates: start: 20060120
  2. AVANDIA [Concomitant]
     Route: 048
  3. PLAVIX [Concomitant]
     Route: 048
  4. LIPITOR [Concomitant]
     Route: 048
  5. FUROSEMIDE [Concomitant]
  6. LEVOXYL [Concomitant]
     Route: 048

REACTIONS (2)
  - CONDITION AGGRAVATED [None]
  - OEDEMA PERIPHERAL [None]
